FAERS Safety Report 6028935-7 (Version None)
Quarter: 2008Q4

REPORT INFORMATION
  Report Type: 
  Country: None (occurrence: None)
  Receive Date: 20081222
  Receipt Date: 20081103
  Transmission Date: 20090506
  Serious: No
  Sender: FDA-Public Use
  Company Number: ALL1-2008-03197

PATIENT
  Sex: Female

DRUGS (1)
  1. VYVANSE [Suspect]
     Dosage: SEE IMAGE
     Route: 048
     Dates: start: 20080701

REACTIONS (2)
  - DRUG INEFFECTIVE [None]
  - OVERDOSE [None]
